FAERS Safety Report 14977195 (Version 1)
Quarter: 2018Q2

REPORT INFORMATION
  Report Type: Spontaneous
  Country: DE (occurrence: DE)
  Receive Date: 20180606
  Receipt Date: 20180606
  Transmission Date: 20180711
  Serious: Yes (Hospitalization)
  Sender: FDA-Public Use
  Company Number: DE-TEVA-2018-DE-902429

PATIENT
  Age: 77 Year
  Sex: Female

DRUGS (6)
  1. SIMVASTATIN. [Concomitant]
     Active Substance: SIMVASTATIN
     Dosage: 0-0-1.5-0
  2. METOPROLOL. [Suspect]
     Active Substance: METOPROLOL
     Dosage: 1-0-1-0
  3. NITRENDIPINE [Suspect]
     Active Substance: NITRENDIPINE
     Dosage: 0.5-0-0.5-0
  4. RAMIPRIL. [Suspect]
     Active Substance: RAMIPRIL
     Dosage: 1-0-1-0
  5. ACETYLSALICYLSAEURE [Concomitant]
     Active Substance: ASPIRIN
     Dosage: 1-0-0-0
  6. LEVOTHYROXIN [Concomitant]
     Active Substance: LEVOTHYROXINE
     Dosage: 1-0-0-0

REACTIONS (2)
  - Fall [Unknown]
  - Dizziness [Unknown]
